FAERS Safety Report 10053335 (Version 1)
Quarter: 2014Q2

REPORT INFORMATION
  Report Type: Spontaneous
  Country: BR (occurrence: BR)
  Receive Date: 20140402
  Receipt Date: 20140402
  Transmission Date: 20141212
  Serious: Yes (Hospitalization, Other)
  Sender: FDA-Public Use
  Company Number: PHHY2014BR038437

PATIENT
  Age: 52 Year
  Sex: Male

DRUGS (7)
  1. TEGRETOL [Suspect]
     Indication: BIPOLAR DISORDER
     Dosage: 3 DF, DAILY
     Route: 048
     Dates: start: 1996, end: 1999
  2. TEGRETOL [Suspect]
     Dosage: UNK UKN, UNK
     Dates: start: 2003, end: 2005
  3. TEGRETOL [Suspect]
     Dosage: UNK UKN, UNK
     Dates: start: 2005
  4. FLUOXETINE [Suspect]
     Indication: DEPRESSION
     Dosage: UNK UKN, UNK
  5. LAMITOR [Suspect]
     Dosage: UNK UKN, UNK
  6. CARBOLITHIUM [Suspect]
     Indication: BIPOLAR DISORDER
     Dosage: UNK UKN, UNK
  7. COFFEEMED N [Concomitant]
     Dosage: UNK UKN, UNK

REACTIONS (6)
  - Abnormal behaviour [Recovered/Resolved]
  - Nervous system disorder [Recovered/Resolved]
  - Depression [Recovered/Resolved]
  - Euphoric mood [Recovered/Resolved]
  - Mania [Recovered/Resolved]
  - Drug ineffective [Unknown]
